FAERS Safety Report 5069147-3 (Version None)
Quarter: 2006Q3

REPORT INFORMATION
  Report Type: 
  Country: None (occurrence: None)
  Receive Date: 20060731
  Receipt Date: 20060717
  Transmission Date: 20061208
  Serious: Yes (Life-Threatening)
  Sender: FDA-Public Use
  Company Number: HQWYE288324JUL06

PATIENT
  Age: 70 Year
  Sex: Male

DRUGS (1)
  1. TYGACIL [Suspect]
     Indication: PNEUMONIA KLEBSIELLA
     Dosage: INTRAVENOUS
     Route: 042

REACTIONS (1)
  - HEPATIC FAILURE [None]
